FAERS Safety Report 7048523-3 (Version None)
Quarter: 2010Q4

REPORT INFORMATION
  Report Type: 
  Country: None (occurrence: None)
  Receive Date: 20101008
  Receipt Date: 20100422
  Transmission Date: 20110411
  Serious: Yes (Disabling)
  Sender: FDA-Public Use
  Company Number: 711345

PATIENT
  Age: 55 Year
  Sex: Female

DRUGS (3)
  1. (CALCIUM FOLINATE) [Suspect]
     Indication: COLON CANCER
     Dosage: 100 MG MILLIGRAM(S), INTRAVENOUS DRIP
     Route: 041
     Dates: start: 20090814, end: 20091222
  2. OXALIPLATIN [Suspect]
     Indication: COLON CANCER
     Dosage: 100 MG MILLIGRAM(S), INTRAVENOUS DRIP
     Route: 041
     Dates: start: 20090814, end: 20091222
  3. FLUOROURACIL [Suspect]
     Indication: COLON CANCER
     Dosage: 500 MG/M 2 MILLIGRAM(S), /SQ. METER, INTRAVENOUS DRIP
     Route: 041
     Dates: start: 20090814, end: 20091222

REACTIONS (4)
  - DYSAESTHESIA [None]
  - FEELING ABNORMAL [None]
  - FEELING COLD [None]
  - PARAESTHESIA [None]
